FAERS Safety Report 5496393-7 (Version None)
Quarter: 2007Q4

REPORT INFORMATION
  Report Type: 
  Country: None (occurrence: None)
  Receive Date: 20071025
  Receipt Date: 20070403
  Transmission Date: 20080405
  Serious: No
  Sender: FDA-Public Use
  Company Number: A0645783A

PATIENT
  Age: 55 Year
  Sex: Female

DRUGS (7)
  1. ADVAIR DISKUS 100/50 [Suspect]
     Indication: ASTHMA
     Dosage: 1PUFF TWICE PER DAY
     Route: 055
     Dates: start: 20010101
  2. SINGULAIR [Concomitant]
  3. ALBUTEROL [Concomitant]
  4. CLARINEX [Concomitant]
  5. LOTENSIN [Concomitant]
  6. MECLIZINE [Concomitant]
  7. AMITRIPTYLINE HCL [Concomitant]

REACTIONS (1)
  - ASTIGMATISM [None]
